FAERS Safety Report 10039550 (Version 9)
Quarter: 2023Q1

REPORT INFORMATION
  Report Type: Spontaneous
  Country: FR (occurrence: FR)
  Receive Date: 20140326
  Receipt Date: 20230316
  Transmission Date: 20230417
  Serious: Yes (Life-Threatening, Hospitalization, Other)
  Sender: FDA-Public Use
  Company Number: FR-BOEHRINGER INGELHEIM GMBH, GERMANY-2014-BI-12821BY

PATIENT
  Age: 67 Year
  Sex: Male
  Weight: 50.00 kg

DRUGS (7)
  1. HYDROCHLOROTHIAZIDE\TELMISARTAN [Suspect]
     Active Substance: HYDROCHLOROTHIAZIDE\TELMISARTAN
     Indication: Product used for unknown indication
     Route: 065
  2. XARELTO [Suspect]
     Active Substance: RIVAROXABAN
     Indication: Atrial fibrillation
     Route: 048
     Dates: start: 20121220, end: 20130224
  3. XARELTO [Suspect]
     Active Substance: RIVAROXABAN
     Indication: Atrial fibrillation
  4. AMLODIPINE [Suspect]
     Active Substance: AMLODIPINE BESYLATE
     Indication: Product used for unknown indication
     Route: 065
  5. FLECAINIDE [Concomitant]
     Active Substance: FLECAINIDE
     Indication: Product used for unknown indication
  6. BETAXOLOL [Concomitant]
     Active Substance: BETAXOLOL
     Indication: Product used for unknown indication
  7. ROSUVASTATIN [Concomitant]
     Active Substance: ROSUVASTATIN
     Indication: Product used for unknown indication

REACTIONS (14)
  - Intestinal ischaemia [Unknown]
  - Shock haemorrhagic [Unknown]
  - Splenic rupture [Unknown]
  - Cold sweat [Unknown]
  - Blood pressure decreased [Unknown]
  - Dizziness [Unknown]
  - Abdominal pain [Unknown]
  - Multi-organ disorder [Unknown]
  - Haemoperitoneum [Unknown]
  - Gastrointestinal ischaemia [Unknown]
  - Multiple organ dysfunction syndrome [Unknown]
  - Gastrointestinal ischaemia [Unknown]
  - Potentiating drug interaction [Unknown]
  - Haemorrhage [Unknown]

NARRATIVE: CASE EVENT DATE: 20130224
